FAERS Safety Report 15752353 (Version 1)
Quarter: 2018Q4

REPORT INFORMATION
  Report Type: Spontaneous
  Country: US (occurrence: US)
  Receive Date: 20181221
  Receipt Date: 20181221
  Transmission Date: 20190205
  Serious: Yes (Hospitalization)
  Sender: FDA-Public Use
  Company Number: US-LPDUSPRD-20182426

PATIENT
  Age: 46 Year
  Sex: Male

DRUGS (5)
  1. ETOMIDATE INJECTION (0780-10) [Suspect]
     Active Substance: ETOMIDATE
     Dosage: 20 MG
     Route: 065
  2. ADDERALL [Concomitant]
     Active Substance: AMPHETAMINE ASPARTATE\AMPHETAMINE SULFATE\DEXTROAMPHETAMINE SACCHARATE\DEXTROAMPHETAMINE SULFATE
     Dosage: UNKNOWN
     Route: 065
  3. NO DRUG NAME [Concomitant]
     Dosage: UNKNOWN
     Route: 065
  4. PROPOFOL. [Concomitant]
     Active Substance: PROPOFOL
     Dosage: 60 MG
     Route: 040
  5. ROCURONIUM [Suspect]
     Active Substance: ROCURONIUM BROMIDE
     Dosage: 80 MG
     Route: 065

REACTIONS (1)
  - Thyrotoxic crisis [Recovering/Resolving]
